FAERS Safety Report 8971192 (Version 3)
Quarter: 2013Q2

REPORT INFORMATION
  Report Type: Spontaneous
  Country: US (occurrence: US)
  Receive Date: 20121218
  Receipt Date: 20130401
  Transmission Date: 20140414
  Serious: Yes (Hospitalization)
  Sender: FDA-Public Use
  Company Number: US-BAYER-2012-131444

PATIENT
  Age: 43 Year
  Sex: Female
  Weight: 66.21 kg

DRUGS (11)
  1. YASMIN [Suspect]
  2. YAZ [Suspect]
  3. PROPRANOLOL [Concomitant]
  4. SYNTHROID [Concomitant]
  5. FEXOFENADINE [Concomitant]
  6. DEPAKOTE [Concomitant]
  7. EFEXOR ER [Concomitant]
  8. ENTEX [Concomitant]
  9. ALLEGRA [Concomitant]
  10. MOTRIN [Concomitant]
  11. INDERAL [Concomitant]

REACTIONS (4)
  - Cerebrovascular accident [None]
  - Injury [None]
  - Pain [None]
  - Pain [None]
